FAERS Safety Report 24084772 (Version 1)
Quarter: 2024Q3

REPORT INFORMATION
  Report Type: Spontaneous
  Country: JP (occurrence: JP)
  Receive Date: 20240712
  Receipt Date: 20240712
  Transmission Date: 20241017
  Serious: Yes (Hospitalization, Other)
  Sender: PFIZER
  Company Number: JP-PFIZER INC-PV202400089514

PATIENT
  Weight: 2.746 kg

DRUGS (2)
  1. LORAZEPAM [Suspect]
     Active Substance: LORAZEPAM
     Indication: Depression
     Dosage: UNK
     Route: 064
  2. SERTRALINE [Suspect]
     Active Substance: SERTRALINE HYDROCHLORIDE
     Indication: Depression
     Dosage: UNK
     Route: 064

REACTIONS (4)
  - Maternal exposure timing unspecified [Unknown]
  - Hypoxic ischaemic encephalopathy neonatal [Unknown]
  - Myocardial ischaemia [Unknown]
  - Neonatal behavioural syndrome [Unknown]
